FAERS Safety Report 9996007 (Version 3)
Quarter: 2014Q1

REPORT INFORMATION
  Report Type: Report from Study
  Country: US (occurrence: US)
  Receive Date: 20140311
  Receipt Date: 20140320
  Transmission Date: 20141002
  Serious: Yes (Hospitalization)
  Sender: FDA-Public Use
  Company Number: US-ACTELION-A-US2013-89904

PATIENT
  Age: 88 Year
  Sex: Female

DRUGS (3)
  1. TRACLEER [Suspect]
     Indication: PULMONARY ARTERIAL HYPERTENSION
     Dosage: UNK
     Route: 048
     Dates: start: 20110824
  2. TYVASO [Concomitant]
  3. COUMADIN [Concomitant]

REACTIONS (6)
  - Cardiac pacemaker replacement [Unknown]
  - Dizziness [Unknown]
  - Dyspnoea [Recovering/Resolving]
  - Anaemia [Unknown]
  - Dyspnoea exertional [Unknown]
  - Loss of consciousness [Unknown]
